FAERS Safety Report 5930472-2 (Version None)
Quarter: 2008Q4

REPORT INFORMATION
  Report Type: 
  Country: None (occurrence: None)
  Receive Date: 20081023
  Receipt Date: 20060306
  Transmission Date: 20090506
  Serious: Yes (Hospitalization, Other)
  Sender: FDA-Public Use
  Company Number: 2006AL001931

PATIENT
  Age: 41 Year
  Sex: Male

DRUGS (4)
  1. DICLOFENAC SODIUM [Suspect]
     Indication: PAIN
     Dates: start: 20060113, end: 20060113
  2. AMOXICILLIN [Concomitant]
  3. CLAVULANATE POTASSIUM [Concomitant]
  4. VOLTAREN [Concomitant]

REACTIONS (2)
  - EPISTAXIS [None]
  - POST PROCEDURAL HAEMORRHAGE [None]
